FAERS Safety Report 9840316 (Version 1)
Quarter: 2013Q4

REPORT INFORMATION
  Report Type: Spontaneous
  Country: US (occurrence: None)
  Receive Date: 20131223
  Receipt Date: 20131223
  Transmission Date: 20140711
  Serious: No
  Sender: FDA-Public Use
  Company Number: 219821LEO

PATIENT
  Age: 78 Year
  Sex: Female

DRUGS (2)
  1. PICATO [Suspect]
     Indication: PRECANCEROUS SKIN LESION
     Route: 061
     Dates: start: 20121126, end: 20121128
  2. SIMVASTATIN(SIMVASTATIN)(80 MG) [Concomitant]

REACTIONS (3)
  - Application site scab [None]
  - Application site discharge [None]
  - Application site erythema [None]
